FAERS Safety Report 8091715-5 (Version None)
Quarter: 2012Q1

REPORT INFORMATION
  Report Type: 
  Country: None (occurrence: None)
  Receive Date: 20120131
  Receipt Date: 20120117
  Transmission Date: 20120608
  Serious: Yes (Death, Hospitalization)
  Sender: FDA-Public Use
  Company Number: IL-CELGENEUS-082-C5013-11102529

PATIENT
  Sex: Male
  Weight: 63 kg

DRUGS (10)
  1. LENALIDOMIDE [Suspect]
     Dosage: 25 MILLIGRAM
     Route: 048
     Dates: start: 20111005, end: 20111013
  2. DOCETAXEL [Suspect]
     Dosage: 125 MILLIGRAM
     Route: 041
     Dates: start: 20111005, end: 20111005
  3. LENALIDOMIDE [Suspect]
     Indication: PROSTATE CANCER
     Dosage: 25 MILLIGRAM
     Route: 048
     Dates: start: 20110823, end: 20110907
  4. RISPERIDONE [Concomitant]
     Indication: SCHIZOPHRENIA
     Dosage: 2 MILLIGRAM
     Route: 048
     Dates: start: 20081103
  5. PREDNISONE TAB [Suspect]
     Indication: PROSTATE CANCER
     Dosage: 10 MILLIGRAM
     Route: 048
     Dates: start: 20110825, end: 20110914
  6. ALFUZOSIN HYDROCHLORIDE [Concomitant]
     Indication: URINARY RETENTION
     Dosage: 10 MILLIGRAM
     Route: 048
     Dates: start: 20101029
  7. LAXADIN [Concomitant]
     Indication: CONSTIPATION
     Dosage: 5 MILLIGRAM
     Route: 048
     Dates: start: 20100716
  8. DOCETAXEL [Suspect]
     Indication: PROSTATE CANCER
     Dosage: 125 MILLIGRAM
     Route: 041
     Dates: start: 20110825, end: 20110825
  9. PREDNISONE TAB [Suspect]
     Dosage: 10 MILLIGRAM
     Route: 048
     Dates: start: 20111005, end: 20111018
  10. LANTON [Concomitant]
     Dosage: 30 MILLIGRAM
     Route: 048
     Dates: start: 20081002

REACTIONS (2)
  - CARDIOGENIC SHOCK [None]
  - RESPIRATORY FAILURE [None]
